FAERS Safety Report 7360800-5 (Version None)
Quarter: 2011Q1

REPORT INFORMATION
  Report Type: 
  Country: None (occurrence: None)
  Receive Date: 20110318
  Receipt Date: 20110308
  Transmission Date: 20110831
  Serious: Yes (Other)
  Sender: FDA-Public Use
  Company Number: GB-SANOFI-AVENTIS-2011SA014200

PATIENT
  Age: 75 Year
  Sex: Female

DRUGS (6)
  1. MULTAQ [Suspect]
     Route: 048
     Dates: start: 20110106, end: 20110215
  2. MIRTAZAPINE [Concomitant]
  3. BISOPROLOL [Concomitant]
  4. METFORMIN HCL [Concomitant]
     Route: 048
  5. SIMVASTATIN [Concomitant]
  6. WARFARIN SODIUM [Concomitant]

REACTIONS (3)
  - DIZZINESS [None]
  - BLOOD PRESSURE DECREASED [None]
  - DYSPNOEA [None]
